FAERS Safety Report 7535538-1 (Version None)
Quarter: 2011Q2

REPORT INFORMATION
  Report Type: 
  Country: None (occurrence: None)
  Receive Date: 20110609
  Receipt Date: 20110603
  Transmission Date: 20111010
  Serious: Yes (Death)
  Sender: FDA-Public Use
  Company Number: US-CELGENEUS-163-21880-10050288

PATIENT
  Sex: Male
  Weight: 82.174 kg

DRUGS (9)
  1. REVLIMID [Suspect]
     Dosage: 25 MILLIGRAM
     Route: 048
     Dates: start: 20100118, end: 20100401
  2. WARFARIN SODIUM [Concomitant]
     Indication: PROPHYLAXIS
     Route: 065
  3. LUNESTA [Concomitant]
     Indication: INSOMNIA
     Dosage: 2 MILLIGRAM
     Route: 065
     Dates: start: 20100125
  4. METFORMIN HCL [Concomitant]
     Dosage: 1000 MILLIGRAM
     Route: 065
     Dates: start: 20090201
  5. LISINOPRIL AND HYDROCHLOROTHIAZIDE [Concomitant]
     Indication: HYPERTENSION
     Dosage: 10-25MG
     Route: 065
     Dates: start: 20070701, end: 20100329
  6. ASPIRIN [Concomitant]
     Indication: THROMBOSIS PROPHYLAXIS
     Dosage: 81 MILLIGRAM
     Route: 065
     Dates: start: 20100116
  7. LISINOPRIL [Concomitant]
     Indication: HYPERTENSION
     Dosage: 20 MILLIGRAM
     Route: 065
     Dates: start: 20070701, end: 20100330
  8. LMWH [Concomitant]
     Indication: PROPHYLAXIS
     Route: 065
  9. GEMCITABINE [Suspect]
     Dosage: 1000 MILLIGRAM
     Route: 051
     Dates: start: 20100118, end: 20100329

REACTIONS (1)
  - NEOPLASM PROGRESSION [None]
